FAERS Safety Report 8521613-1 (Version None)
Quarter: 2012Q3

REPORT INFORMATION
  Report Type: 
  Country: None (occurrence: None)
  Receive Date: 20120719
  Receipt Date: 20120712
  Transmission Date: 20120928
  Serious: Yes (Death, Hospitalization)
  Sender: FDA-Public Use
  Company Number: NL-BRISTOL-MYERS SQUIBB COMPANY-16754186

PATIENT
  Age: 66 Year
  Sex: Female

DRUGS (16)
  1. IPILIMUMAB [Suspect]
     Indication: MALIGNANT MELANOMA
     Dosage: INTER-11JUN12 DOSE:29MG
     Route: 042
     Dates: start: 20120521
  2. SEREVENT [Concomitant]
  3. ACETYLSALICYLZUUR CARDIO [Concomitant]
  4. TRAMADOL HCL [Concomitant]
     Dates: start: 20120530, end: 20120711
  5. ZONOCT [Concomitant]
  6. PRIMPERAN TAB [Concomitant]
  7. LIQUIFILM FORTE [Concomitant]
  8. FLUTICASONE PROPIONATE [Concomitant]
  9. CALCICHEW D3 [Concomitant]
  10. TEMAZEPAM [Concomitant]
  11. DICLOFENAC SODIUM [Concomitant]
  12. NITROLINGUAL [Concomitant]
  13. FENTANYL [Concomitant]
     Dates: start: 20120530, end: 20120711
  14. PAROXETINE [Concomitant]
  15. OMEPRAZOLE MAGNESIUM [Concomitant]
  16. LEVONORGESTREL AND ETHINYL ESTRADIOL [Concomitant]

REACTIONS (5)
  - BLOOD BILIRUBIN INCREASED [None]
  - ABDOMINAL PAIN UPPER [None]
  - ASPARTATE AMINOTRANSFERASE INCREASED [None]
  - NEOPLASM MALIGNANT [None]
  - DYSPNOEA [None]
